FAERS Safety Report 23920244 (Version 2)
Quarter: 2024Q2

REPORT INFORMATION
  Report Type: Spontaneous
  Country: IL (occurrence: IL)
  Receive Date: 20240530
  Receipt Date: 20240603
  Transmission Date: 20240716
  Serious: Yes (Other)
  Sender: FDA-Public Use
  Company Number: IL-UROGEN PHARMA LTD.-2024-UGN-000065

PATIENT

DRUGS (1)
  1. JELMYTO [Suspect]
     Active Substance: MITOMYCIN
     Indication: Transitional cell cancer of the renal pelvis and ureter
     Dosage: UNK
     Route: 065
     Dates: start: 20240515, end: 20240515

REACTIONS (3)
  - Chronic kidney disease [Unknown]
  - Urinary retention [Unknown]
  - Adverse event [Unknown]

NARRATIVE: CASE EVENT DATE: 20240501
